FAERS Safety Report 26000823 (Version 1)
Quarter: 2025Q4

REPORT INFORMATION
  Report Type: Spontaneous
  Country: US (occurrence: US)
  Receive Date: 20251105
  Receipt Date: 20251105
  Transmission Date: 20260118
  Serious: No
  Sender: ANI
  Company Number: US-ANIPHARMA-2025-US-043018

PATIENT
  Sex: Female

DRUGS (5)
  1. IBUPROFEN [Concomitant]
     Active Substance: IBUPROFEN
  2. VITAMIN C [Concomitant]
     Active Substance: ASCORBIC ACID
  3. JOINT HEALTH MINERAL FORMULA [Concomitant]
  4. VITAMIN D [Concomitant]
     Active Substance: VITAMIN D NOS
  5. CORTICOTROPIN [Suspect]
     Active Substance: CORTICOTROPIN
     Indication: Rheumatoid arthritis
     Dosage: 80 TWICE A WEEK
     Route: 058

REACTIONS (1)
  - Palpitations [Unknown]
